FAERS Safety Report 7185706-6 (Version None)
Quarter: 2010Q4

REPORT INFORMATION
  Report Type: 
  Country: None (occurrence: None)
  Receive Date: 20101222
  Receipt Date: 20100608
  Transmission Date: 20110411
  Serious: No
  Sender: FDA-Public Use
  Company Number: US-AMGEN-KDL417189

PATIENT

DRUGS (2)
  1. ENBREL [Suspect]
     Indication: RHEUMATOID ARTHRITIS
     Dosage: 50 MG, UNK
     Route: 058
     Dates: end: 20100526
  2. HYDROXYCHLOROQUINE SULFATE [Concomitant]

REACTIONS (6)
  - EXFOLIATIVE RASH [None]
  - FATIGUE [None]
  - GINGIVAL ERYTHEMA [None]
  - MALAISE [None]
  - PRECANCEROUS SKIN LESION [None]
  - VULVOVAGINAL MYCOTIC INFECTION [None]
